FAERS Safety Report 9812774 (Version 2)
Quarter: 2014Q2

REPORT INFORMATION
  Report Type: Spontaneous
  Country: IT (occurrence: IT)
  Receive Date: 20140113
  Receipt Date: 20140421
  Transmission Date: 20141212
  Serious: Yes (Death)
  Sender: FDA-Public Use
  Company Number: IT-MYLANLABS-113AS20130801

PATIENT
  Age: 89 Year
  Sex: Female

DRUGS (14)
  1. TICLOPIDINE HYDROCHLORIDE [Suspect]
     Indication: THROMBOSIS PROPHYLAXIS
     Dosage: 500 MG DAILY
     Route: 048
     Dates: start: 20120101, end: 20130424
  2. TORA-DOL [Suspect]
     Indication: PAIN
     Dosage: 1 DF DAILY
     Route: 042
     Dates: start: 20130425, end: 20130427
  3. TORA-DOL [Suspect]
     Indication: PAIN
     Dosage: 1 DF AS NECESSARY
     Route: 042
     Dates: start: 20130501, end: 20130504
  4. CLEXANE [Suspect]
     Indication: THROMBOSIS PROPHYLAXIS
     Dosage: 1 DF DAILY
     Route: 058
     Dates: start: 20130424, end: 20130505
  5. TAVANIC [Concomitant]
     Indication: URINARY TRACT INFECTION
     Dosage: 1 DF
     Route: 042
     Dates: start: 20130430, end: 20130506
  6. TRIATEC [Concomitant]
     Indication: HYPERTENSION
     Dosage: 1 DF
     Route: 048
  7. ZYLORIC [Concomitant]
     Indication: PRODUCT USED FOR UNKNOWN INDICATION
     Dosage: .5 DF
     Route: 048
  8. NOVONORM [Concomitant]
     Indication: DIABETES MELLITUS
     Dosage: 2.0 MG TABLET
     Dates: start: 20130101, end: 20130430
  9. LASIX [Concomitant]
     Indication: HYPERTENSION
     Dosage: 25 MG TABLET
  10. TORVAST [Concomitant]
     Indication: PRODUCT USED FOR UNKNOWN INDICATION
     Dosage: 10 MG TABLET
  11. ROCALTROL [Concomitant]
     Indication: OSTEOPOROSIS
     Dosage: 0.25 UG SOFT CAPSULE
  12. HALCION [Concomitant]
     Indication: PRODUCT USED FOR UNKNOWN INDICATION
     Dosage: 125 UG TABLET
  13. ADALAT [Concomitant]
     Indication: PRODUCT USED FOR UNKNOWN INDICATION
     Dosage: 10 MG SOFT CAPSULE
  14. BISOPROLOL HEMIFUMARATE [Concomitant]
     Indication: CARDIAC FAILURE
     Dosage: 1.25 MG

REACTIONS (6)
  - Gastric ulcer haemorrhage [Fatal]
  - Anaemia [Fatal]
  - Haematemesis [Fatal]
  - Hypotension [Fatal]
  - Melaena [Fatal]
  - Medication error [Unknown]
